FAERS Safety Report 16334918 (Version 1)
Quarter: 2019Q2

REPORT INFORMATION
  Report Type: Spontaneous
  Country: GB (occurrence: GB)
  Receive Date: 20190520
  Receipt Date: 20190520
  Transmission Date: 20190711
  Serious: Yes (Disabling)
  Sender: FDA-Public Use
  Company Number: PHHY2019GB111707

PATIENT
  Age: 86 Year
  Sex: Male

DRUGS (1)
  1. VALACICLOVIR HYDROCHLORIDE [Suspect]
     Active Substance: VALACYCLOVIR HYDROCHLORIDE
     Indication: HERPES ZOSTER
     Dosage: 3 G, QD
     Route: 048
     Dates: start: 20190414

REACTIONS (4)
  - Hallucination, visual [Unknown]
  - Hallucination, auditory [Unknown]
  - Disorientation [Unknown]
  - Confusional state [Unknown]

NARRATIVE: CASE EVENT DATE: 20190415
